FAERS Safety Report 8513887 (Version 4)
Quarter: 2013Q2

REPORT INFORMATION
  Report Type: Report from Study
  Country: FR (occurrence: FR)
  Receive Date: 20120416
  Receipt Date: 20130422
  Transmission Date: 20140414
  Serious: Yes (Hospitalization, Other)
  Sender: FDA-Public Use
  Company Number: FR-ROCHE-1056061

PATIENT
  Age: 73 Year
  Sex: Male

DRUGS (24)
  1. RITUXIMAB [Suspect]
     Indication: B-CELL LYMPHOMA
     Dosage: FIRST COURSE
     Route: 065
     Dates: start: 20080215
  2. RITUXIMAB [Suspect]
     Dosage: SECOND COURSE
     Route: 065
     Dates: start: 20080314
  3. RITUXIMAB [Suspect]
     Dosage: THIRD COURSE
     Route: 065
     Dates: start: 20080411
  4. RITUXIMAB [Suspect]
     Dosage: FOURTH COURSE
     Route: 065
     Dates: start: 20080509
  5. RITUXIMAB [Suspect]
     Dosage: FIFTH COURSE
     Route: 065
     Dates: start: 20080619, end: 20091202
  6. ENDOXAN [Concomitant]
     Indication: B-CELL LYMPHOMA
     Dosage: FIRST COURSE
     Route: 065
     Dates: start: 20080215
  7. ENDOXAN [Concomitant]
     Dosage: SECOND COURSE
     Route: 065
     Dates: start: 20080314
  8. ENDOXAN [Concomitant]
     Dosage: THIRD COURSE
     Route: 065
     Dates: start: 20080411
  9. ENDOXAN [Concomitant]
     Dosage: FOURTH COURSE
     Route: 065
     Dates: start: 20080509
  10. ENDOXAN [Concomitant]
     Dosage: FIFTH COURSE
     Route: 065
     Dates: start: 20080619
  11. FLUDARA [Concomitant]
     Indication: B-CELL LYMPHOMA
     Dosage: FIRST COURSE
     Route: 065
     Dates: start: 20080215
  12. FLUDARA [Concomitant]
     Dosage: SECOND COURSE
     Route: 065
     Dates: start: 20080314
  13. FLUDARA [Concomitant]
     Dosage: THIRD COURSE
     Route: 065
     Dates: start: 20080411
  14. FLUDARA [Concomitant]
     Dosage: FOURTH COURSE
     Route: 065
     Dates: start: 20080509
  15. FLUDARA [Concomitant]
     Dosage: FIFTH COURSE
     Route: 065
     Dates: start: 20080619
  16. BACTRIM [Concomitant]
     Indication: INFECTION PROPHYLAXIS
     Dosage: FIRST COURSE
     Route: 065
     Dates: start: 20081124
  17. BACTRIM [Concomitant]
     Dosage: SECOND COURSE
     Route: 065
     Dates: start: 20090224
  18. BACTRIM [Concomitant]
     Dosage: THIRD COURSE
     Route: 065
     Dates: start: 20090525
  19. BACTRIM [Concomitant]
     Dosage: FOURTH COURSE
     Route: 065
     Dates: start: 20090825
  20. ZELITREX [Concomitant]
     Indication: INFECTION PROPHYLAXIS
     Dosage: FIRST COURSE
     Route: 065
     Dates: start: 20081124
  21. ZELITREX [Concomitant]
     Dosage: SECOND COURSE
     Route: 065
     Dates: start: 20090224
  22. ZELITREX [Concomitant]
     Dosage: THIRD COURSE
     Route: 065
     Dates: start: 20090525
  23. ZELITREX [Concomitant]
     Dosage: FOURTH COURSE
     Route: 065
     Dates: start: 20090825
  24. LEDERFOLINE [Concomitant]

REACTIONS (3)
  - Pneumocystis jirovecii pneumonia [Recovered/Resolved]
  - Myelodysplastic syndrome [Unknown]
  - Urinary tract infection [Unknown]
